FAERS Safety Report 14018985 (Version 1)
Quarter: 2017Q3

REPORT INFORMATION
  Report Type: Spontaneous
  Country: US (occurrence: US)
  Receive Date: 20170928
  Receipt Date: 20170928
  Transmission Date: 20171128
  Serious: No
  Sender: FDA-Public Use
  Company Number: US-PFIZER INC-2017419092

PATIENT
  Age: 70 Year
  Sex: Male

DRUGS (2)
  1. VIAGRA [Suspect]
     Active Substance: SILDENAFIL CITRATE
     Indication: ERECTILE DYSFUNCTION
     Dosage: 50 MG (100 MG, 1/2 TAB), 1X/DAY
     Route: 048
     Dates: start: 20170920
  2. ZOLOFT [Concomitant]
     Active Substance: SERTRALINE HYDROCHLORIDE
     Dosage: UNK

REACTIONS (2)
  - Intentional product use issue [Unknown]
  - Drug ineffective [Unknown]
